FAERS Safety Report 8594835-1 (Version None)
Quarter: 2012Q3

REPORT INFORMATION
  Report Type: 
  Country: None (occurrence: None)
  Receive Date: 20120815
  Receipt Date: 20120801
  Transmission Date: 20120928
  Serious: Yes (Hospitalization)
  Sender: FDA-Public Use
  Company Number: GB-MYLANLABS-2012S1015926

PATIENT
  Age: 71 Year
  Sex: Male

DRUGS (4)
  1. NABUMETONE [Suspect]
     Indication: SPONDYLITIS
     Route: 048
     Dates: start: 20120620, end: 20120703
  2. PERINDOPRIL ERBUMINE [Concomitant]
     Indication: HYPERTENSION
  3. PERINDOPRIL ERBUMINE [Concomitant]
  4. DOXAZOSIN MESYLATE [Concomitant]
     Indication: HYPERTENSION

REACTIONS (2)
  - VISUAL ACUITY REDUCED [None]
  - PRODUCT SUBSTITUTION ISSUE [None]
